FAERS Safety Report 7780191-5 (Version None)
Quarter: 2011Q3

REPORT INFORMATION
  Report Type: 
  Country: None (occurrence: None)
  Receive Date: 20110927
  Receipt Date: 20110927
  Transmission Date: 20111222
  Serious: Yes (Other)
  Sender: FDA-Public Use
  Company Number: None

PATIENT

DRUGS (2)
  1. DOBUTAMINE HCL [Suspect]
  2. DOBUTAMINE HCL [Concomitant]

REACTIONS (2)
  - CIRCUMSTANCE OR INFORMATION CAPABLE OF LEADING TO MEDICATION ERROR [None]
  - PRODUCT OUTER PACKAGING ISSUE [None]
